FAERS Safety Report 9670189 (Version 1)
Quarter: 2013Q4

REPORT INFORMATION
  Report Type: Spontaneous
  Country: US (occurrence: None)
  Receive Date: 20131104
  Receipt Date: 20131104
  Transmission Date: 20140711
  Serious: Yes (Other)
  Sender: FDA-Public Use
  Company Number: AUR=APL=2013-09183

PATIENT
  Age: 61 Year
  Sex: Female
  Weight: 86.17 kg

DRUGS (4)
  1. PANTOPRAZOLE [Suspect]
     Indication: PRODUCT USED FOR UNKNOWN INDICATION
  2. ATENOLOL [Suspect]
     Indication: BLOOD PRESSURE
     Route: 048
     Dates: start: 2003
  3. HYDROCHLOROTHIAZIDE [Suspect]
     Indication: BLOOD PRESSURE
     Route: 048
     Dates: start: 2003
  4. NEXIUM (ESOMEPRAZOLE MAGNESIUM) [Suspect]
     Indication: GASTROOESOPHAGEAL REFLUX DISEASE
     Route: 048
     Dates: start: 2003, end: 201309

REACTIONS (15)
  - Abdominal pain upper [None]
  - Drug ineffective [None]
  - Therapy cessation [None]
  - Depression [None]
  - Fall [None]
  - Meniscus injury [None]
  - Osteoarthritis [None]
  - Head injury [None]
  - Disease progression [None]
  - Weight increased [None]
  - Carpal tunnel syndrome [None]
  - Disease recurrence [None]
  - Gastrooesophageal reflux disease [None]
  - Gastric disorder [None]
  - Sleep disorder due to general medical condition, insomnia type [None]
